FAERS Safety Report 17889812 (Version 1)
Quarter: 2020Q2

REPORT INFORMATION
  Report Type: Spontaneous
  Country: US (occurrence: US)
  Receive Date: 20200612
  Receipt Date: 20200612
  Transmission Date: 20200714
  Serious: Yes (Hospitalization)
  Sender: FDA-Public Use
  Company Number: None

PATIENT
  Age: 70 Year
  Sex: Male

DRUGS (11)
  1. METOPROL TAR TAB 25MG [Concomitant]
     Dates: start: 20200522
  2. OMEPRAZOLE CAP 20MG [Concomitant]
     Active Substance: OMEPRAZOLE
     Dates: start: 20200315
  3. LEVOTHYROXIN TAB 175MCG [Concomitant]
  4. DOFETILIDE. [Suspect]
     Active Substance: DOFETILIDE
     Indication: HYPERTENSION
     Route: 048
     Dates: start: 20180131
  5. SERTRALINE TAB 50MG [Concomitant]
     Dates: start: 20200504
  6. LISINOPRIL TAB 10MG [Concomitant]
     Active Substance: LISINOPRIL
     Dates: start: 20200527
  7. METOPROL TAR TAB 50MG [Concomitant]
     Dates: start: 20200527
  8. POLYETH GLYC POW 3350 NF [Concomitant]
     Dates: start: 20200522
  9. TEMAZEPAM CAP 22.5MG [Concomitant]
  10. COLCHICINE TAB 0.6MG [Concomitant]
     Dates: start: 20200527
  11. ZOLPIDEM TAB 10MG [Concomitant]
     Dates: start: 20200604

REACTIONS (1)
  - Pericardial effusion [None]

NARRATIVE: CASE EVENT DATE: 20200611
